FAERS Safety Report 9366801 (Version 1)
Quarter: 2013Q2

REPORT INFORMATION
  Report Type: Spontaneous
  Country: GB (occurrence: None)
  Receive Date: 20130620
  Receipt Date: 20130620
  Transmission Date: 20140414
  Serious: Yes (Hospitalization)
  Sender: FDA-Public Use
  Company Number: DKLU1091595

PATIENT
  Age: 16 Year
  Sex: Male

DRUGS (17)
  1. COSMEGEN [Suspect]
     Indication: SARCOMA
     Route: 040
     Dates: start: 20110924
  2. BEVACIZUMAB [Suspect]
     Indication: SARCOMA
     Dosage: INTRAVENOUS (NOT OTHERWISE SPECIFIED)
     Route: 042
     Dates: start: 20110924
  3. IFOSFAMIDE [Suspect]
     Indication: SARCOMA
     Dosage: INTRAVENOUS (NOT OTHERWISE SPECIFIED)
     Route: 042
  4. MESNA [Suspect]
     Indication: SARCOMA
     Dosage: INTRAVENOUS (NOT OTHERWISE SPECIFIED)
     Route: 042
     Dates: start: 20111104
  5. DOXORUBICIN HYDROCHLORIDE [Suspect]
     Indication: SARCOMA
     Dosage: INTRAVENOUS (NOT OTHERWISE SPECIFIED)
     Route: 042
     Dates: start: 20110924
  6. VINCRISTINE [Suspect]
     Indication: SARCOMA
     Dosage: 2 MG MILLIGRAM(S), WEEKLY, INTRAVENOUS BOLUS
     Route: 040
     Dates: start: 20110924
  7. DOCUSATE SODIUM (DOCUSATE SODIUM) [Concomitant]
  8. HYOSCINE PATCH (HYOSCINE)(PATCH) [Concomitant]
  9. PARACETAMOL (PARACETAMOL) [Concomitant]
  10. MELATONIN (MELATONIN) [Concomitant]
  11. MST (MORPHINE SULFATE) [Concomitant]
  12. ONDANSETRON (ONDANSETRON) [Concomitant]
  13. METOCLOPRAMIDE (METOCLOPRAMIDE) [Concomitant]
  14. OMEPRAZOLE (OMEPRAZOLE) [Concomitant]
  15. COTRIMOXAZOLE (BACTRIM) [Concomitant]
  16. PROCAL (SODIUM FLUORIDE) [Concomitant]
  17. CHLORPHENIRAMINE (CHLORPHE:NAMINE) [Concomitant]

REACTIONS (3)
  - Febrile neutropenia [None]
  - Constipation [None]
  - Haemoglobin decreased [None]
